FAERS Safety Report 21168174 (Version 1)
Quarter: 2022Q3

REPORT INFORMATION
  Report Type: Spontaneous
  Country: US (occurrence: US)
  Receive Date: 20220803
  Receipt Date: 20220803
  Transmission Date: 20221026
  Serious: Yes (Other)
  Sender: FDA-Public Use
  Company Number: US-BAYER-2022A103723

PATIENT

DRUGS (1)
  1. MIRALAX [Suspect]
     Active Substance: POLYETHYLENE GLYCOL 3350
     Indication: Colonoscopy
     Dosage: 16 DOSES OF MIRALAX IN A 4-HOUR PERIOD DOSE
     Route: 048

REACTIONS (3)
  - Gastrointestinal erosion [None]
  - Eye disorder [Unknown]
  - Off label use [Unknown]
